FAERS Safety Report 16862610 (Version 1)
Quarter: 2019Q3

REPORT INFORMATION
  Report Type: Spontaneous
  Country: FR (occurrence: FR)
  Receive Date: 20190927
  Receipt Date: 20190927
  Transmission Date: 20191005
  Serious: Yes (Other)
  Sender: FDA-Public Use
  Company Number: FR-PFIZER INC-2019409590

PATIENT
  Age: 53 Year
  Sex: Male
  Weight: 107.5 kg

DRUGS (2)
  1. OXALIPLATIN. [Suspect]
     Active Substance: OXALIPLATIN
     Indication: HEPATIC CANCER
     Dosage: 200 MG, EVERY 15 DAYS
     Route: 042
     Dates: start: 20180928, end: 20190215
  2. GEMCITABINE HYDROCHLORIDE. [Suspect]
     Active Substance: GEMCITABINE HYDROCHLORIDE
     Indication: HEPATIC CANCER
     Dosage: 2000 MG, EVERY 15 DAYS
     Route: 042
     Dates: start: 20180928

REACTIONS (3)
  - Off label use [Unknown]
  - Bronchospasm [Recovered/Resolved]
  - Product use in unapproved indication [Unknown]

NARRATIVE: CASE EVENT DATE: 20190215
